FAERS Safety Report 18659880 (Version 1)
Quarter: 2020Q4

REPORT INFORMATION
  Report Type: Spontaneous
  Country: US (occurrence: US)
  Receive Date: 20201223
  Receipt Date: 20201223
  Transmission Date: 20210114
  Serious: No
  Sender: FDA-Public Use
  Company Number: None

PATIENT
  Age: 67 Year
  Sex: Male

DRUGS (1)
  1. TASIGNA [Suspect]
     Active Substance: NILOTINIB
     Route: 048
     Dates: start: 201812

REACTIONS (4)
  - Incorrect dose administered [None]
  - Pain in extremity [None]
  - Back pain [None]
  - Gait inability [None]

NARRATIVE: CASE EVENT DATE: 20201001
